FAERS Safety Report 9862856 (Version 1)
Quarter: 2014Q1

REPORT INFORMATION
  Report Type: Spontaneous
  Country: US (occurrence: US)
  Receive Date: 20140203
  Receipt Date: 20140203
  Transmission Date: 20141002
  Serious: Yes (Death)
  Sender: FDA-Public Use
  Company Number: CHPA2014US001435

PATIENT
  Age: 59 Year
  Sex: Male

DRUGS (6)
  1. CHLORPHENIRAMINE [Suspect]
     Route: 048
  2. DEXTROMETHORPHAN HYDROBROMIDE [Suspect]
     Route: 048
  3. ACETAMINOPHEN (PARACETAMOL) [Suspect]
     Route: 048
  4. ETHANOL [Suspect]
     Route: 048
  5. DOXYLAMINE [Suspect]
     Route: 048
  6. METHADONE [Suspect]
     Route: 048

REACTIONS (1)
  - Intentional drug misuse [Fatal]
